FAERS Safety Report 13501425 (Version 2)
Quarter: 2017Q4

REPORT INFORMATION
  Report Type: Spontaneous
  Country: US (occurrence: US)
  Receive Date: 20170501
  Receipt Date: 20171027
  Transmission Date: 20180320
  Serious: No
  Sender: FDA-Public Use
  Company Number: US-ROCHE-1823786

PATIENT
  Sex: Male

DRUGS (1)
  1. ESBRIET [Suspect]
     Active Substance: PIRFENIDONE
     Indication: IDIOPATHIC PULMONARY FIBROSIS
     Dosage: 4 CAPSULE 3 X A DAY
     Route: 065

REACTIONS (3)
  - Dyspnoea [Unknown]
  - Choking sensation [Unknown]
  - Overdose [Unknown]
